FAERS Safety Report 12674372 (Version 1)
Quarter: 2016Q3

REPORT INFORMATION
  Report Type: Spontaneous
  Country: JP (occurrence: JP)
  Receive Date: 20160822
  Receipt Date: 20160822
  Transmission Date: 20161109
  Serious: Yes (Death)
  Sender: FDA-Public Use
  Company Number: JP-CIPLA LTD.-2016JP17422

PATIENT

DRUGS (9)
  1. LEVOFLOXACIN. [Suspect]
     Active Substance: LEVOFLOXACIN
     Indication: ATYPICAL MYCOBACTERIAL INFECTION
     Dosage: 250 MG, QD FOR 2 MONTHS
     Route: 065
  2. CLARITHROMYCIN. [Suspect]
     Active Substance: CLARITHROMYCIN
     Indication: ATYPICAL MYCOBACTERIAL INFECTION
     Dosage: 600 MG, QD, FOR 2 MONTHS
     Route: 065
  3. SALAZOSULFAPYRIDINE [Suspect]
     Active Substance: SULFASALAZINE
     Indication: JOINT SWELLING
     Dosage: UNK
     Route: 065
  4. ETHAMBUTOL [Suspect]
     Active Substance: ETHAMBUTOL HYDROCHLORIDE
     Indication: ATYPICAL MYCOBACTERIAL INFECTION
     Dosage: 625 MG, QD, FOR 2 MONTHS
     Route: 065
  5. METHOTREXATE. [Suspect]
     Active Substance: METHOTREXATE
     Indication: JOINT SWELLING
     Dosage: UNK
     Route: 065
  6. RIFAMPICIN [Suspect]
     Active Substance: RIFAMPIN
     Indication: ATYPICAL MYCOBACTERIAL INFECTION
     Dosage: 450 MG, QD, FOR 3 MONTHS
     Route: 065
  7. MIZORIBINE [Suspect]
     Active Substance: MIZORIBINE
     Indication: JOINT SWELLING
     Dosage: UNK
     Route: 065
  8. CLARITHROMYCIN. [Suspect]
     Active Substance: CLARITHROMYCIN
     Dosage: 600 MG, QD, FOR 3 MONTHS
     Route: 065
  9. LEVOFLOXACIN. [Suspect]
     Active Substance: LEVOFLOXACIN
     Dosage: 250 MG, QD FOR 3 MONTHS
     Route: 065

REACTIONS (1)
  - Aortic dissection [Fatal]
